FAERS Safety Report 9684167 (Version 2)
Quarter: 2013Q4

REPORT INFORMATION
  Report Type: Spontaneous
  Country: US (occurrence: US)
  Receive Date: 20131112
  Receipt Date: 20131223
  Transmission Date: 20140711
  Serious: No
  Sender: FDA-Public Use
  Company Number: US-TEVA-443623USA

PATIENT
  Age: 33 Year
  Sex: Female

DRUGS (2)
  1. PARAGARD 380A [Suspect]
     Indication: CONTRACEPTION
     Route: 015
     Dates: start: 20131030, end: 20131104
  2. MULTIVITAMIN [Concomitant]

REACTIONS (2)
  - Pelvic pain [Recovered/Resolved]
  - Device expulsion [Recovered/Resolved]
